FAERS Safety Report 12359542 (Version 1)
Quarter: 2016Q2

REPORT INFORMATION
  Report Type: Spontaneous
  Country: US (occurrence: None)
  Receive Date: 20160511
  Receipt Date: 20160511
  Transmission Date: 20160815
  Serious: No
  Sender: FDA-Public Use
  Company Number: None

PATIENT
  Age: 66 Year
  Sex: Male
  Weight: 88.45 kg

DRUGS (18)
  1. METFORMIN, 1000 MG AMNEAL [Suspect]
     Active Substance: METFORMIN HYDROCHLORIDE
     Route: 048
     Dates: start: 20160429, end: 20160430
  2. COLACE [Concomitant]
     Active Substance: DOCUSATE SODIUM
  3. AVODART [Concomitant]
     Active Substance: DUTASTERIDE
  4. AMARYL [Concomitant]
     Active Substance: GLIMEPIRIDE
  5. SYNTHROID [Concomitant]
     Active Substance: LEVOTHYROXINE SODIUM
  6. JANUVIA [Concomitant]
     Active Substance: SITAGLIPTIN PHOSPHATE
  7. ARICEPT [Concomitant]
     Active Substance: DONEPEZIL HYDROCHLORIDE
  8. LIPITOR [Concomitant]
     Active Substance: ATORVASTATIN CALCIUM
  9. ZETIA [Concomitant]
     Active Substance: EZETIMIBE
  10. MEGACE [Concomitant]
     Active Substance: MEGESTROL ACETATE
  11. COUMADIN [Concomitant]
     Active Substance: WARFARIN SODIUM
  12. VITAMIN D3 [Concomitant]
     Active Substance: CHOLECALCIFEROL
  13. FERROUS SULFATE. [Concomitant]
     Active Substance: FERROUS SULFATE
  14. OMEGA 3 [Concomitant]
     Active Substance: OMEGA-3 FATTY ACIDS
  15. MAG-OXIDE [Concomitant]
  16. NAMENDA XR [Concomitant]
     Active Substance: MEMANTINE HYDROCHLORIDE
  17. ASPIRIN. [Concomitant]
     Active Substance: ASPIRIN
  18. CLARITIN [Concomitant]
     Active Substance: LORATADINE

REACTIONS (1)
  - Blood glucose decreased [None]

NARRATIVE: CASE EVENT DATE: 20160501
